FAERS Safety Report 8789291 (Version 1)
Quarter: 2012Q4

REPORT INFORMATION
  Report Type: Spontaneous
  Country: US (occurrence: None)
  Receive Date: 20120904
  Receipt Date: 20120904
  Transmission Date: 20130627
  Serious: Yes (Death, Hospitalization)
  Sender: FDA-Public Use
  Company Number: B0826336A

PATIENT
  Age: 78 Year
  Sex: Female

DRUGS (3)
  1. ASPIRIN (ASPIRIN) [Suspect]
     Indication: PRODUCT USED FOR UNKNOWN INDICATION
  2. DABIGATRAN [Suspect]
     Indication: PRODUCT USED FOR UNKNOWN INDICATION
  3. PROPAFENONE [Suspect]
     Indication: PRODUCT USED FOR UNKNOWN INDICATION

REACTIONS (17)
  - Pleural haemorrhage [None]
  - Mental status changes [None]
  - Blood creatinine increased [None]
  - Creatinine renal clearance decreased [None]
  - International normalised ratio increased [None]
  - Activated partial thromboplastin time prolonged [None]
  - Aspartate aminotransferase increased [None]
  - Alanine aminotransferase increased [None]
  - Haemoglobin decreased [None]
  - Haematocrit decreased [None]
  - Platelet count decreased [None]
  - Haemodialysis [None]
  - General physical health deterioration [None]
  - Hypotension [None]
  - Retroperitoneal haemorrhage [None]
  - Gastrointestinal haemorrhage [None]
  - Drug interaction [None]
